FAERS Safety Report 7719706-1 (Version None)
Quarter: 2011Q3

REPORT INFORMATION
  Report Type: 
  Country: None (occurrence: None)
  Receive Date: 20110830
  Receipt Date: 20110608
  Transmission Date: 20111222
  Serious: Yes (Hospitalization, Other)
  Sender: FDA-Public Use
  Company Number: PHHY2011JP74683

PATIENT
  Age: 70 Year
  Sex: Male

DRUGS (3)
  1. ZOMETA [Suspect]
     Indication: MULTIPLE MYELOMA
  2. MELPHALAN [Suspect]
     Indication: MULTIPLE MYELOMA
     Dosage: 10 MG, DAILY
     Route: 048
     Dates: start: 20091101, end: 20091101
  3. PREDNISOLONE [Concomitant]
     Indication: MULTIPLE MYELOMA
     Dosage: 70 MG, UNK
     Route: 048
     Dates: start: 20091101, end: 20091101

REACTIONS (4)
  - CYSTITIS HAEMORRHAGIC [None]
  - DEVICE OCCLUSION [None]
  - BLADDER TAMPONADE [None]
  - BLADDER PERFORATION [None]
